FAERS Safety Report 16729561 (Version 1)
Quarter: 2019Q3

REPORT INFORMATION
  Report Type: Spontaneous
  Country: CA (occurrence: CA)
  Receive Date: 20190822
  Receipt Date: 20190822
  Transmission Date: 20191005
  Serious: Yes (Other)
  Sender: FDA-Public Use
  Company Number: CA-MYLANLABS-2019M1077998

PATIENT
  Age: 10 Year
  Sex: Male

DRUGS (41)
  1. DOXORUBICIN [Suspect]
     Active Substance: DOXORUBICIN
     Dosage: RECEIVED OVER 60MINUTES, ON DAYS 2 AND 3 DURING MAINTENANCE COURSE M1
     Route: 042
  2. CYTARABINE. [Suspect]
     Active Substance: CYTARABINE
     Indication: BURKITT^S LYMPHOMA STAGE III
     Dosage: RECEIVED OVER 24 HOURS ON DAYS 2-6 DURING CHEMOTHERAPY COURSE R-CYM-1
     Route: 041
  3. ETOPOSIDE. [Suspect]
     Active Substance: ETOPOSIDE
     Indication: BURKITT^S LYMPHOMA STAGE III
     Dosage: RECEIVED OVER 2 HOURS, ON DAYS 2-5 DURING CHEMOTHERAPY COURSE R-CYVE 1 AND 2
     Route: 042
  4. PREDNISONE. [Suspect]
     Active Substance: PREDNISONE
     Dosage: RECEIVED ON DAY 1-5, THEN TAPER OVER 3 DAYS DURING MAINTENANCE COURSE M1
     Route: 048
  5. RITUXIMAB. [Suspect]
     Active Substance: RITUXIMAB
     Indication: BURKITT^S LYMPHOMA STAGE III
     Dosage: RECEIVED ON DAY -1 AND DAY +1 DURING CHEMOTHERAPY COURSE (R-COPADM-1 AND 2)
     Route: 042
  6. METHOTREXATE. [Suspect]
     Active Substance: METHOTREXATE
     Dosage: RECEIVED 3G/M2 OVER 3 HOURS ON DAY 1 DURING CHEMOTHERAPY REGIMEN R-CYM 1.
     Route: 042
  7. HYDROCORTISONE. [Suspect]
     Active Substance: HYDROCORTISONE
     Dosage: RECEIVED ON DAYS 2 AND 6 DURING CHEMOTHERAPY COURSE (R-COPADM-1 AND 2).
     Route: 037
  8. CYTARABINE. [Suspect]
     Active Substance: CYTARABINE
     Dosage: RECEIVED ON DAY 2 DURING MAINTENANCE COURSE M1
     Route: 037
  9. CYCLOPHOSPHAMIDE. [Suspect]
     Active Substance: CYCLOPHOSPHAMIDE
     Dosage: RECEIVED OVER 60MINUTES, ON DAYS 2 AND 3 DURING MAINTENANCE COURSE M1
     Route: 042
  10. FILGRASTIM [Concomitant]
     Active Substance: FILGRASTIM
     Dosage: 5 MICROGRAM/KILOGRAM
     Route: 065
  11. PREDNISONE. [Suspect]
     Active Substance: PREDNISONE
     Indication: BURKITT^S LYMPHOMA STAGE III
     Dosage: RECEIVED ON DAY 1-7 DURING PRE-PHASE
     Route: 048
  12. CYCLOPHOSPHAMIDE. [Suspect]
     Active Substance: CYCLOPHOSPHAMIDE
     Indication: BURKITT^S LYMPHOMA STAGE III
     Dosage: OVER 30 MINUTES ON DAY 1 DURING PRE-PHASE
     Route: 042
  13. LEUCOVORIN                         /00566701/ [Concomitant]
     Active Substance: LEUCOVORIN
     Dosage: RECEIVED DURING MAINTENANCE COURSE M1
     Route: 065
  14. CASPOFUNGIN [Concomitant]
     Active Substance: CASPOFUNGIN
     Indication: PROPHYLAXIS
     Route: 042
  15. LEUCOVORIN                         /00566701/ [Concomitant]
     Active Substance: LEUCOVORIN
     Dosage: RECEIVED AT 48 AND 60 HOURS AFTER METHOTREXATE DURING ON DAY 6 DURING CHEMOTHERAPY COURSE (R-COPA...
     Route: 048
  16. METHOTREXATE. [Suspect]
     Active Substance: METHOTREXATE
     Dosage: RECEIVED 3G/M2 OVER 3 HOURS ON DAY 1 DURING CHEMOTHERAPY COURSE (R-COPADM-1 AND 2).
     Route: 042
  17. METHOTREXATE. [Suspect]
     Active Substance: METHOTREXATE
     Dosage: RECEIVED 8G/M2 OVER 4 HOURS ON DAY 1 DURING MAINTENANCE COURSE M1
     Route: 042
  18. HYDROCORTISONE. [Suspect]
     Active Substance: HYDROCORTISONE
     Indication: BURKITT^S LYMPHOMA STAGE III
     Dosage: RECEIVED ON DAY 1 DURING PRE-PHASE
     Route: 037
  19. CYTARABINE. [Suspect]
     Active Substance: CYTARABINE
     Dosage: RECEIVED ON DAY 1-5 DURING MAINTENANCE COURSE M2
     Route: 065
  20. CYCLOPHOSPHAMIDE. [Suspect]
     Active Substance: CYCLOPHOSPHAMIDE
     Dosage: RECEIVED OVER 30 MINUTES ON DAYS 2, 3 AND 4 DURING CHEMOTHERAPY COURSE (R-COPADM-1 AND 2).
     Route: 042
  21. VINCRISTINE [Suspect]
     Active Substance: VINCRISTINE
     Indication: BURKITT^S LYMPHOMA STAGE III
     Dosage: RECEIVED ON DAY 1 DURING PRE-PHASE
     Route: 040
  22. VINCRISTINE [Suspect]
     Active Substance: VINCRISTINE
     Dosage: RECEIVED ON DAY 1 DURING MAINTENANCE COURSE M1
     Route: 040
  23. RITUXIMAB. [Suspect]
     Active Substance: RITUXIMAB
     Dosage: RECEIVED ON DAY 1 DURING CHEMOTHERAPY REGIMEN R-CYVE 1 AND 2
     Route: 042
  24. FILGRASTIM [Concomitant]
     Active Substance: FILGRASTIM
     Dosage: 5 MICROGRAM/KILOGRAM, QD
     Route: 058
  25. HYDROCORTISONE. [Suspect]
     Active Substance: HYDROCORTISONE
     Dosage: RECEIVED ON DAYS 2 AND 7 DURING CHEMOTHERAPY COURSE R-CYM-1
     Route: 037
  26. DOXORUBICIN [Suspect]
     Active Substance: DOXORUBICIN
     Indication: BURKITT^S LYMPHOMA STAGE III
     Dosage: RECEIVED OVER 15 MINUTES ON DAY 2 DURING CHEMOTHERAPY COURSE (R-COPADM-1 AND 2)
     Route: 042
  27. CYTARABINE. [Suspect]
     Active Substance: CYTARABINE
     Dosage: RECEIVED ON DAY 7 DURING CHEMOTHERAPY COURSE R-CYM-1
     Route: 037
  28. ETOPOSIDE. [Suspect]
     Active Substance: ETOPOSIDE
     Dosage: RECEIVED OVER 2 HOURS, ON DAYS 1, 2 AND 3
     Route: 042
  29. VINCRISTINE [Suspect]
     Active Substance: VINCRISTINE
     Dosage: RECEIVED ON DAY 1 DURING CHEMOTHERAPY COURSE (R-COPADM-1 AND 2)
     Route: 040
  30. RASBURICASE [Concomitant]
     Active Substance: RASBURICASE
     Indication: TUMOUR LYSIS SYNDROME
     Route: 065
  31. LEUCOVORIN                         /00566701/ [Concomitant]
     Active Substance: LEUCOVORIN
     Dosage: RECEIVED DURING CHEMOTHERAPY COURSE R-CYM-1
     Route: 065
  32. METHOTREXATE. [Suspect]
     Active Substance: METHOTREXATE
     Indication: BURKITT^S LYMPHOMA STAGE III
     Dosage: RECEIVED ON DAY 1 DURING PRE-PHASE
     Route: 037
  33. METHOTREXATE. [Suspect]
     Active Substance: METHOTREXATE
     Dosage: RECEIVED ON DAYS 2 AND 6 DURING CHEMOTHERAPY COURSE (R-COPADM-1 AND 2).
     Route: 037
  34. CYTARABINE. [Suspect]
     Active Substance: CYTARABINE
     Dosage: RECEIVED OVER 12 HOURS, ON DAYS 1-5 DURING CHEMOTHERAPY COURSE R-CYVE 1 AND 2
     Route: 041
  35. CYTARABINE. [Suspect]
     Active Substance: CYTARABINE
     Dosage: RECEIVED OVER 3 HOURS ON DAYS 2-5 DURING CHEMOTHERAPY COURSE R-CYVE 1 AND 2
     Route: 042
  36. LEVOFLOXACIN. [Concomitant]
     Active Substance: LEVOFLOXACIN
     Indication: PROPHYLAXIS
     Route: 048
  37. METHOTREXATE. [Suspect]
     Active Substance: METHOTREXATE
     Dosage: RECEIVED ON DAY 2 DURING CHEMOTHERAPY COURSE R-CYM-1
     Route: 037
  38. METHOTREXATE. [Suspect]
     Active Substance: METHOTREXATE
     Dosage: RECEIVED ON DAY 2 DURING MAINTENANCE COURSE M1
     Route: 037
  39. HYDROCORTISONE. [Suspect]
     Active Substance: HYDROCORTISONE
     Dosage: RECEIVED ON DAY 2 DURING MAINTENANCE COURSE M1
     Route: 037
  40. PREDNISONE. [Suspect]
     Active Substance: PREDNISONE
     Dosage: RECEIVED ON DAY 1-5, THEN TAPER OVER 3 DAYS DURING CHEMOTHERAPY COURSE (R-COPADM-1 AND 2).
     Route: 048
  41. RITUXIMAB. [Suspect]
     Active Substance: RITUXIMAB
     Dosage: RECEIVED ON DAY 1 DURING CHEMOTHERAPY REGIMEN R-CYM 1
     Route: 042

REACTIONS (10)
  - Mucosal inflammation [Unknown]
  - Rash erythematous [Recovered/Resolved]
  - Clostridium difficile infection [Unknown]
  - Enteritis infectious [Unknown]
  - Candida infection [Unknown]
  - Rash pruritic [Recovered/Resolved]
  - Full blood count decreased [Recovered/Resolved]
  - Hypotension [Unknown]
  - Skin disorder [Recovering/Resolving]
  - Febrile neutropenia [Recovering/Resolving]
